FAERS Safety Report 6719928-2 (Version None)
Quarter: 2010Q2

REPORT INFORMATION
  Report Type: 
  Country: None (occurrence: None)
  Receive Date: 20100507
  Receipt Date: 20100428
  Transmission Date: 20101027
  Serious: Yes (Other)
  Sender: FDA-Public Use
  Company Number: 2009SP028557

PATIENT
  Age: 32 Year
  Sex: Female

DRUGS (3)
  1. NUVARING [Suspect]
     Indication: CONTRACEPTION
     Dosage: VAG
     Route: 067
  2. DICLOFENAC SODIUM [Suspect]
     Indication: DRUG USE FOR UNKNOWN INDICATION
     Dosage: PO
     Route: 048
  3. MONUROL [Suspect]
     Indication: NEPHROLITHIASIS
     Dosage: PO
     Route: 048
     Dates: start: 20090101

REACTIONS (3)
  - DRUG INTERACTION [None]
  - NEPHROLITHIASIS [None]
  - SINUSITIS [None]
